FAERS Safety Report 25060147 (Version 1)
Quarter: 2025Q1

REPORT INFORMATION
  Report Type: Spontaneous
  Country: CA (occurrence: CA)
  Receive Date: 20250310
  Receipt Date: 20250310
  Transmission Date: 20250409
  Serious: Yes (Death, Hospitalization, Disabling)
  Sender: ROCHE
  Company Number: CA-ROCHE-10000224062

PATIENT
  Age: 43 Year
  Sex: Female
  Weight: 68 kg

DRUGS (3)
  1. RITUXIMAB [Suspect]
     Active Substance: RITUXIMAB
     Indication: Rheumatoid arthritis
     Route: 065
  2. RITUXIMAB [Suspect]
     Active Substance: RITUXIMAB
     Route: 048
  3. VITAMIN D3 [Concomitant]
     Active Substance: CHOLECALCIFEROL
     Indication: Product used for unknown indication
     Route: 065

REACTIONS (14)
  - Adrenal insufficiency [Fatal]
  - Contraindicated product administered [Fatal]
  - Drug tolerance [Fatal]
  - Maternal exposure during pregnancy [Fatal]
  - Hypokalaemia [Fatal]
  - Immunodeficiency [Fatal]
  - Intentional product use issue [Fatal]
  - Joint destruction [Fatal]
  - Loss of consciousness [Fatal]
  - Off label use [Fatal]
  - Polyarthritis [Fatal]
  - Product use in unapproved indication [Fatal]
  - Therapeutic product effect decreased [Fatal]
  - Therapy non-responder [Fatal]
